FAERS Safety Report 8179334-3 (Version None)
Quarter: 2012Q1

REPORT INFORMATION
  Report Type: 
  Country: None (occurrence: None)
  Receive Date: 20120302
  Receipt Date: 20120220
  Transmission Date: 20120608
  Serious: Yes (Hospitalization)
  Sender: FDA-Public Use
  Company Number: US-BAYER-2011-053150

PATIENT
  Age: 21 Year
  Sex: Female
  Weight: 82 kg

DRUGS (8)
  1. VITAMIN D [Concomitant]
     Dosage: 1000 MG, UNK
     Route: 065
  2. MOTRIN [Concomitant]
     Dosage: UNK UNK, Q2WK
     Route: 048
  3. NORTRIPTYLINE HCL [Concomitant]
     Indication: MIGRAINE
     Dosage: UNK
     Dates: start: 20100608, end: 20100612
  4. YAZ [Suspect]
     Indication: POLYCYSTIC OVARIES
     Dosage: UNK
     Dates: start: 20050101, end: 20100601
  5. YAZ [Suspect]
     Dosage: UNK
     Dates: start: 20060101, end: 20100601
  6. YASMIN [Suspect]
     Indication: POLYCYSTIC OVARIES
     Dosage: UNK
     Dates: start: 20020101, end: 20050101
  7. YASMIN [Suspect]
     Dosage: UNK
     Dates: start: 20020101, end: 20060101
  8. VICODIN [Concomitant]
     Dosage: UNK UNK, 5ID
     Route: 048

REACTIONS (5)
  - PAIN [None]
  - INJURY [None]
  - PELVIC VENOUS THROMBOSIS [None]
  - EMOTIONAL DISTRESS [None]
  - ANXIETY [None]
